FAERS Safety Report 14069487 (Version 1)
Quarter: 2017Q4

REPORT INFORMATION
  Report Type: Spontaneous
  Country: US (occurrence: US)
  Receive Date: 20171010
  Receipt Date: 20171010
  Transmission Date: 20180321
  Serious: No
  Sender: FDA-Public Use
  Company Number: US-BAYER-2017-193830

PATIENT
  Age: 84 Year
  Sex: Female
  Weight: 52.97 kg

DRUGS (3)
  1. MIRALAX [Suspect]
     Active Substance: POLYETHYLENE GLYCOL 3350
     Indication: GASTROINTESTINAL DISORDER
     Dosage: UNK (1 CAPFUL MIXED IN WATER)
     Route: 048
     Dates: start: 2017
  2. BOOST [Concomitant]
     Active Substance: DIETARY SUPPLEMENT
  3. MIRALAX [Suspect]
     Active Substance: POLYETHYLENE GLYCOL 3350
     Indication: GASTROINTESTINAL DISORDER
     Dosage: UNK (1 CAPFUL MIXED IN WATER)
     Route: 048
     Dates: end: 20171008

REACTIONS (3)
  - Drug ineffective [Unknown]
  - Inappropriate prescribing [Unknown]
  - Product use issue [Unknown]

NARRATIVE: CASE EVENT DATE: 2017
